FAERS Safety Report 10258010 (Version 1)
Quarter: 2014Q2

REPORT INFORMATION
  Report Type: Spontaneous
  Country: US (occurrence: None)
  Receive Date: 20140623
  Receipt Date: 20140623
  Transmission Date: 20141212
  Serious: No
  Sender: FDA-Public Use
  Company Number: None

PATIENT
  Age: 33 Year
  Sex: Female
  Weight: 63.5 kg

DRUGS (2)
  1. CLOBEX SPRAY [Suspect]
     Indication: DANDRUFF
     Dosage: 2X DAILYUP TO 52 SPRAYSPERDAY, TWICE DAILY, APPLIED TO A SURFACE, USUALLY THE SKIN
     Dates: start: 20140515, end: 20140617
  2. CLOBEX SPRAY [Suspect]
     Indication: DRY SKIN
     Dosage: 2X DAILYUP TO 52 SPRAYSPERDAY, TWICE DAILY, APPLIED TO A SURFACE, USUALLY THE SKIN
     Dates: start: 20140515, end: 20140617

REACTIONS (3)
  - Throat irritation [None]
  - Oropharyngeal pain [None]
  - Hair disorder [None]
